FAERS Safety Report 5464637-3 (Version None)
Quarter: 2007Q3

REPORT INFORMATION
  Report Type: 
  Country: None (occurrence: None)
  Receive Date: 20070921
  Receipt Date: 20070911
  Transmission Date: 20080115
  Serious: Yes (Death, Other)
  Sender: FDA-Public Use
  Company Number: TW-ABBOTT-07P-153-0416709-00

PATIENT
  Age: 69 Year
  Sex: Male

DRUGS (5)
  1. CYCLOSPORINE [Suspect]
     Indication: IMMUNOSUPPRESSION
     Dosage: NOT REPORTED
     Dates: start: 20010101
  2. PREDNISOLONE [Suspect]
     Indication: IMMUNOSUPPRESSION
     Dates: start: 20010101, end: 20050101
  3. PREDNISOLONE [Suspect]
     Indication: PEMPHIGUS
  4. PREDNISOLONE [Suspect]
  5. MYCOPHENOLATE MOFETIL [Suspect]
     Indication: IMMUNOSUPPRESSION
     Dosage: NOT REPORTED
     Dates: start: 20010101

REACTIONS (1)
  - HEPATITIS B [None]
